FAERS Safety Report 17569923 (Version 6)
Quarter: 2020Q3

REPORT INFORMATION
  Report Type: Report from Study
  Country: None (occurrence: US)
  Receive Date: 20200323
  Receipt Date: 20200917
  Transmission Date: 20201102
  Serious: Yes (Other)
  Sender: FDA-Public Use
  Company Number: US-ABBVIE-20K-163-3330157-00

PATIENT
  Sex: Female

DRUGS (2)
  1. HUMIRA [Suspect]
     Active Substance: ADALIMUMAB
     Indication: RHEUMATOID ARTHRITIS
     Route: 058
  2. PROMETHAZINE [Suspect]
     Active Substance: PROMETHAZINE HYDROCHLORIDE
     Indication: PRODUCT USED FOR UNKNOWN INDICATION
     Route: 065

REACTIONS (20)
  - Dry mouth [Not Recovered/Not Resolved]
  - Lung disorder [Not Recovered/Not Resolved]
  - Insomnia [Not Recovered/Not Resolved]
  - Nasopharyngitis [Not Recovered/Not Resolved]
  - Pain in extremity [Not Recovered/Not Resolved]
  - Hypophagia [Not Recovered/Not Resolved]
  - Dry throat [Not Recovered/Not Resolved]
  - Hypertension [Not Recovered/Not Resolved]
  - Epistaxis [Unknown]
  - Cerebral vascular occlusion [Not Recovered/Not Resolved]
  - Sneezing [Unknown]
  - Conjunctivitis [Not Recovered/Not Resolved]
  - Loss of consciousness [Not Recovered/Not Resolved]
  - Renal disorder [Not Recovered/Not Resolved]
  - Urinary incontinence [Not Recovered/Not Resolved]
  - Vomiting [Not Recovered/Not Resolved]
  - Anal incontinence [Not Recovered/Not Resolved]
  - Malnutrition [Not Recovered/Not Resolved]
  - Malaise [Not Recovered/Not Resolved]
  - Gastrointestinal motility disorder [Not Recovered/Not Resolved]

NARRATIVE: CASE EVENT DATE: 2020
